FAERS Safety Report 6914970-0 (Version None)
Quarter: 2010Q3

REPORT INFORMATION
  Report Type: 
  Country: None (occurrence: None)
  Receive Date: 20100809
  Receipt Date: 20100625
  Transmission Date: 20110219
  Serious: Yes (Death, Hospitalization, Other)
  Sender: FDA-Public Use
  Company Number: US-BAXTER-2009BH006026

PATIENT
  Age: 44 Year
  Sex: Male
  Weight: 145 kg

DRUGS (41)
  1. HEPARIN SODIUM [Suspect]
     Indication: PERITONEAL DIALYSIS
     Route: 033
     Dates: start: 20070901, end: 20071201
  2. HEPARIN SODIUM [Suspect]
     Indication: ANTICOAGULANT THERAPY
     Route: 033
     Dates: start: 20070901, end: 20071201
  3. HEPARIN SODIUM [Suspect]
     Route: 058
     Dates: start: 20070911, end: 20070916
  4. HEPARIN SODIUM [Suspect]
     Route: 058
     Dates: start: 20070911, end: 20070916
  5. HEPARIN SODIUM [Suspect]
     Route: 042
     Dates: start: 20070911, end: 20070911
  6. HEPARIN SODIUM [Suspect]
     Route: 042
     Dates: start: 20070911, end: 20070911
  7. HEPARIN SODIUM [Suspect]
     Route: 010
     Dates: start: 20071203, end: 20071203
  8. HEPARIN SODIUM [Suspect]
     Route: 010
     Dates: start: 20071203, end: 20071203
  9. HEPARIN SODIUM [Suspect]
     Route: 042
     Dates: start: 20070912, end: 20070912
  10. HEPARIN SODIUM [Suspect]
     Route: 042
     Dates: start: 20070912, end: 20070912
  11. HEPARIN SODIUM [Suspect]
     Route: 042
     Dates: start: 20070913, end: 20070913
  12. HEPARIN SODIUM [Suspect]
     Route: 042
     Dates: start: 20070913, end: 20070913
  13. HEPARIN SODIUM [Suspect]
     Route: 042
     Dates: start: 20070914, end: 20070914
  14. HEPARIN SODIUM [Suspect]
     Route: 042
     Dates: start: 20070914, end: 20070914
  15. HEPARIN SODIUM 5,000 UNITS IN DEXTROSE 5% [Suspect]
     Indication: PRODUCT USED FOR UNKNOWN INDICATION
     Route: 042
     Dates: start: 20070911, end: 20070916
  16. HEPARIN SODIUM 5,000 UNITS IN DEXTROSE 5% [Suspect]
     Route: 065
     Dates: start: 20070901
  17. HUMALOG [Concomitant]
     Indication: PRODUCT USED FOR UNKNOWN INDICATION
     Route: 058
  18. PANTOPRAZOLE [Concomitant]
     Indication: PRODUCT USED FOR UNKNOWN INDICATION
     Route: 048
  19. ROCALTROL [Concomitant]
     Indication: PRODUCT USED FOR UNKNOWN INDICATION
     Route: 048
  20. PHOSLO [Concomitant]
     Indication: PRODUCT USED FOR UNKNOWN INDICATION
     Route: 048
  21. ATORVASTATIN CALCIUM [Concomitant]
     Indication: PRODUCT USED FOR UNKNOWN INDICATION
     Route: 048
  22. POTASSIUM CHLORIDE [Concomitant]
     Indication: PRODUCT USED FOR UNKNOWN INDICATION
     Route: 048
  23. FOLIC ACID [Concomitant]
     Indication: PRODUCT USED FOR UNKNOWN INDICATION
     Route: 048
  24. VITAMIN B [Concomitant]
     Indication: PRODUCT USED FOR UNKNOWN INDICATION
     Route: 048
  25. ASCORBIC ACID [Concomitant]
     Indication: PRODUCT USED FOR UNKNOWN INDICATION
     Route: 048
  26. HYDROCODONE [Concomitant]
     Indication: PRODUCT USED FOR UNKNOWN INDICATION
     Route: 048
  27. LEXAPRO [Concomitant]
     Indication: PRODUCT USED FOR UNKNOWN INDICATION
     Route: 048
  28. WARFARIN [Concomitant]
     Indication: PRODUCT USED FOR UNKNOWN INDICATION
     Route: 048
  29. ASPIRIN [Concomitant]
     Indication: PRODUCT USED FOR UNKNOWN INDICATION
     Route: 048
  30. LANTUS [Concomitant]
     Indication: PRODUCT USED FOR UNKNOWN INDICATION
     Route: 048
  31. PREDNISONE [Concomitant]
     Indication: PRODUCT USED FOR UNKNOWN INDICATION
     Route: 048
  32. RENAGEL [Concomitant]
     Indication: PRODUCT USED FOR UNKNOWN INDICATION
     Route: 048
  33. CIPRO [Concomitant]
     Indication: PRODUCT USED FOR UNKNOWN INDICATION
     Route: 048
  34. FERROUS SULFATE [Concomitant]
     Indication: PRODUCT USED FOR UNKNOWN INDICATION
     Route: 048
  35. ADVAIR DISKUS 100/50 [Concomitant]
     Indication: PRODUCT USED FOR UNKNOWN INDICATION
     Route: 055
  36. MAGNESIUM OXIDE [Concomitant]
     Indication: PRODUCT USED FOR UNKNOWN INDICATION
     Route: 048
  37. ALBUTEROL SULFATE AND IPRATROPIUM BROMIDE [Concomitant]
     Indication: PRODUCT USED FOR UNKNOWN INDICATION
     Route: 055
  38. VANCOMYCIN [Concomitant]
     Indication: PRODUCT USED FOR UNKNOWN INDICATION
     Route: 065
     Dates: start: 20070901
  39. AUGMENTIN '125' [Concomitant]
     Indication: PRODUCT USED FOR UNKNOWN INDICATION
     Route: 065
     Dates: start: 20070901
  40. ANCEF [Concomitant]
     Indication: PYREXIA
     Route: 033
  41. TOBRAMYCIN [Concomitant]
     Indication: CATHETER SITE INFECTION
     Route: 033
     Dates: start: 20070901, end: 20070901

REACTIONS (15)
  - ASTHENIA [None]
  - BLOOD PRESSURE IMMEASURABLE [None]
  - CELLULITIS [None]
  - DECREASED APPETITE [None]
  - DIARRHOEA [None]
  - DIZZINESS [None]
  - HYPOTENSION [None]
  - LOCALISED INFECTION [None]
  - NAUSEA [None]
  - PERITONITIS [None]
  - PYREXIA [None]
  - RENAL FAILURE CHRONIC [None]
  - STAPHYLOCOCCAL BACTERAEMIA [None]
  - TYPE 2 DIABETES MELLITUS [None]
  - VOMITING [None]
